FAERS Safety Report 4340660-7 (Version None)
Quarter: 2004Q2

REPORT INFORMATION
  Report Type: 
  Country: None (occurrence: None)
  Receive Date: 20040413
  Receipt Date: 20040329
  Transmission Date: 20050107
  Serious: Yes (Other)
  Sender: FDA-Public Use
  Company Number: 193539

PATIENT
  Age: 51 Year
  Sex: Female
  Weight: 70.3075 kg

DRUGS (14)
  1. AVONEX [Suspect]
     Indication: MULTIPLE SCLEROSIS
     Dosage: 15 MG QW IM
     Route: 030
     Dates: start: 20010101, end: 20010101
  2. AVONEX [Suspect]
     Indication: MULTIPLE SCLEROSIS
     Dosage: 30 MCG QW IM
     Route: 030
     Dates: start: 20010101, end: 20031201
  3. AVONEX [Suspect]
     Indication: MULTIPLE SCLEROSIS
     Dosage: 30 MCG QW IM
     Route: 030
     Dates: start: 20031201, end: 20040218
  4. ACTOS [Concomitant]
  5. ACIPHEX [Concomitant]
  6. LIPITOR [Concomitant]
  7. DURAGESIC [Concomitant]
  8. MS CONTIN [Concomitant]
  9. ESTRATEST [Concomitant]
  10. MORPHINE [Concomitant]
  11. AMITRIPTYLINE HCL [Concomitant]
  12. ALLOPURINOL [Concomitant]
  13. PERCOCET [Concomitant]
  14. PHENERGAN ^SPECIA^ [Concomitant]

REACTIONS (2)
  - BREAST CANCER [None]
  - INSOMNIA [None]
